FAERS Safety Report 7918490-6 (Version None)
Quarter: 2011Q4

REPORT INFORMATION
  Report Type: 
  Country: None (occurrence: None)
  Receive Date: 20111116
  Receipt Date: 20110830
  Transmission Date: 20120403
  Serious: No
  Sender: FDA-Public Use
  Company Number: US-COVIDIEN/TYCO HEALTHCARE/MALLINCKRODT-T201101773

PATIENT
  Sex: Male

DRUGS (3)
  1. FENTANYL-100 [Suspect]
     Indication: PAIN
     Dosage: 100 UG/HR EVERY 72 HRS
     Route: 062
     Dates: start: 20110101
  2. FENTANYL [Concomitant]
     Dosage: 100 UG/HR, UNK
     Dates: end: 20110101
  3. ZOLOFT [Concomitant]
     Indication: DEPRESSION
     Dosage: UNK

REACTIONS (2)
  - FORMICATION [None]
  - WITHDRAWAL SYNDROME [None]
